FAERS Safety Report 25888161 (Version 2)
Quarter: 2025Q4

REPORT INFORMATION
  Report Type: Spontaneous
  Country: US (occurrence: US)
  Receive Date: 20251007
  Receipt Date: 20251115
  Transmission Date: 20260117
  Serious: No
  Sender: ALEXION PHARMACEUTICALS
  Company Number: US-AstraZeneca-CH-00963817AP

PATIENT
  Sex: Female

DRUGS (1)
  1. TRUQAP [Suspect]
     Active Substance: CAPIVASERTIB
     Dosage: 200 MILLIGRAM
     Route: 065

REACTIONS (3)
  - Malaise [Unknown]
  - Product dose omission issue [Unknown]
  - Product container issue [Unknown]
